FAERS Safety Report 17917004 (Version 1)
Quarter: 2020Q2

REPORT INFORMATION
  Report Type: Spontaneous
  Country: CN (occurrence: CN)
  Receive Date: 20200619
  Receipt Date: 20200619
  Transmission Date: 20200714
  Serious: Yes (Other)
  Sender: FDA-Public Use
  Company Number: CN-GLAXOSMITHKLINE-CN2020GSK097204

PATIENT
  Sex: Male

DRUGS (2)
  1. LAMIVUDINE. [Suspect]
     Active Substance: LAMIVUDINE
     Indication: CHRONIC HEPATITIS B
     Dosage: 100 MG, 1D
     Dates: start: 1990, end: 2009
  2. ADEFOVIR DIPIVOXIL. [Suspect]
     Active Substance: ADEFOVIR DIPIVOXIL
     Indication: CHRONIC HEPATITIS B
     Dosage: 10 MG, 1D

REACTIONS (26)
  - Pathogen resistance [Recovered/Resolved]
  - Metabolic disorder [Recovered/Resolved]
  - Gene mutation [Recovered/Resolved]
  - Tenderness [Recovered/Resolved]
  - Drug resistance [Recovered/Resolved]
  - Bone pain [Recovered/Resolved]
  - Lipoatrophy [Recovered/Resolved]
  - Osteomalacia [Recovered/Resolved]
  - Multiple fractures [Recovered/Resolved]
  - Blood urea increased [Recovered/Resolved]
  - Tumour excision [Recovered/Resolved]
  - Musculoskeletal chest pain [Recovered/Resolved]
  - Alanine aminotransferase increased [Recovered/Resolved]
  - Enzyme level increased [Recovered/Resolved]
  - Aspartate aminotransferase increased [Recovered/Resolved]
  - Blood phosphorus decreased [Recovered/Resolved]
  - Hyperplasia [Recovered/Resolved]
  - Urine analysis abnormal [Recovered/Resolved]
  - Arthralgia [Recovered/Resolved]
  - Blood phosphorus increased [Recovered/Resolved]
  - Renal failure [Recovered/Resolved]
  - Fanconi syndrome [Recovered/Resolved]
  - Blood creatinine increased [Recovered/Resolved]
  - Blood alkaline phosphatase increased [Recovered/Resolved]
  - Protein total increased [Recovered/Resolved]
  - Bone density decreased [Recovered/Resolved]

NARRATIVE: CASE EVENT DATE: 201411
